FAERS Safety Report 11559805 (Version 1)
Quarter: 2015Q3

REPORT INFORMATION
  Report Type: Spontaneous
  Country: US (occurrence: None)
  Receive Date: 20150925
  Receipt Date: 20150925
  Transmission Date: 20151125
  Serious: No
  Sender: FDA-Public Use
  Company Number: None

PATIENT
  Age: 41 Year
  Sex: Male
  Weight: 70.3 kg

DRUGS (2)
  1. GEMCITABINE HYDROCHLORIDE. [Suspect]
     Active Substance: GEMCITABINE HYDROCHLORIDE
     Dates: end: 20150908
  2. TAXOL [Suspect]
     Active Substance: PACLITAXEL
     Dates: end: 20150908

REACTIONS (2)
  - Neutrophil count decreased [None]
  - White blood cell count decreased [None]

NARRATIVE: CASE EVENT DATE: 20150914
